FAERS Safety Report 22147067 (Version 1)
Quarter: 2023Q1

REPORT INFORMATION
  Report Type: Spontaneous
  Country: US (occurrence: US)
  Receive Date: 20230328
  Receipt Date: 20230328
  Transmission Date: 20230417
  Serious: No
  Sender: FDA-Public Use
  Company Number: US-drreddys-SPO/USA/23/0161155

PATIENT
  Age: 16 Year
  Sex: Female

DRUGS (2)
  1. ACCUTANE [Suspect]
     Active Substance: ISOTRETINOIN
     Indication: Product used for unknown indication
     Dosage: RMA ISSUE DATE: 17 JUNE 2022 03:36:15 PM, 20 JULY 2022 01:26:06 PM, 22 AUGUST 2022 03:16:12 PM, 23 S
  2. ACCUTANE [Suspect]
     Active Substance: ISOTRETINOIN
     Dosage: RMA ISSUE DATE: 20 JULY 2022 01:26:06 PM, 22 AUGUST 2022 03:16:12 PM, 23 SEPTEMBER 2022 10:37:49 AM,

REACTIONS (1)
  - Treatment noncompliance [Unknown]
